FAERS Safety Report 16159837 (Version 1)
Quarter: 2019Q2

REPORT INFORMATION
  Report Type: Spontaneous
  Country: JP (occurrence: JP)
  Receive Date: 20190404
  Receipt Date: 20190404
  Transmission Date: 20190711
  Serious: Yes (Death, Other)
  Sender: FDA-Public Use
  Company Number: JP-JNJFOC-20190406126

PATIENT
  Age: 82 Year
  Sex: Male

DRUGS (6)
  1. BUFFERIN [Concomitant]
     Active Substance: ASPIRIN
     Route: 065
  2. ADALAT [Concomitant]
     Active Substance: NIFEDIPINE
     Route: 065
  3. XARELTO [Suspect]
     Active Substance: RIVAROXABAN
     Indication: PRODUCT USED FOR UNKNOWN INDICATION
     Route: 048
     Dates: start: 201805, end: 201808
  4. ARTIST [Concomitant]
     Active Substance: CARVEDILOL
     Route: 065
  5. JANUVIA [Concomitant]
     Active Substance: SITAGLIPTIN PHOSPHATE
     Route: 065
  6. AZOSEMIDE [Concomitant]
     Active Substance: AZOSEMIDE
     Route: 065

REACTIONS (3)
  - Urinary bladder haemorrhage [Unknown]
  - Myocardial infarction [Fatal]
  - Cystitis haemorrhagic [Recovered/Resolved]

NARRATIVE: CASE EVENT DATE: 201805
